FAERS Safety Report 10627882 (Version 1)
Quarter: 2014Q4

REPORT INFORMATION
  Report Type: Spontaneous
  Country: US (occurrence: US)
  Receive Date: 20141205
  Receipt Date: 20141205
  Transmission Date: 20150529
  Serious: No
  Sender: FDA-Public Use
  Company Number: US-BRISTOL-MYERS SQUIBB COMPANY-21430350

PATIENT
  Age: 66 Year
  Sex: Male

DRUGS (3)
  1. ERBITUX [Suspect]
     Active Substance: CETUXIMAB
     Indication: RECTAL ADENOCARCINOMA
     Dosage: THREE MORE ADJUSTED DOSES ON 12AUG2014, 21AUG2014 AND 02SEP2014
     Route: 042
     Dates: start: 20140805
  2. CAMPTOSAR [Suspect]
     Active Substance: IRINOTECAN HYDROCHLORIDE
     Route: 042
  3. AVASTIN [Suspect]
     Active Substance: BEVACIZUMAB
     Route: 042

REACTIONS (8)
  - Swelling [Not Recovered/Not Resolved]
  - Rash [Not Recovered/Not Resolved]
  - Burning sensation [Not Recovered/Not Resolved]
  - Acne [Not Recovered/Not Resolved]
  - Rash macular [Not Recovered/Not Resolved]
  - Pruritus [Not Recovered/Not Resolved]
  - Nervousness [Not Recovered/Not Resolved]
  - Blood pressure decreased [Not Recovered/Not Resolved]

NARRATIVE: CASE EVENT DATE: 201409
